FAERS Safety Report 8566678-6 (Version None)
Quarter: 2012Q3

REPORT INFORMATION
  Report Type: 
  Country: None (occurrence: None)
  Receive Date: 20120803
  Receipt Date: 20111020
  Transmission Date: 20120928
  Serious: No
  Sender: FDA-Public Use
  Company Number: US-ABBOTT-11P-163-0867753-00

PATIENT
  Sex: Male
  Weight: 95.34 kg

DRUGS (8)
  1. NIASPAN [Suspect]
     Dates: start: 20111019
  2. TOPROL-XL [Concomitant]
     Indication: HYPERTENSION
  3. NIASPAN [Suspect]
     Indication: BLOOD CHOLESTEROL INCREASED
     Dates: start: 20110801, end: 20111018
  4. DARVOCET [Concomitant]
     Indication: PAIN
     Dosage: PRN
  5. FLEXERIL [Concomitant]
     Indication: MYALGIA
     Dosage: PRN
  6. BUPROPION HCL [Concomitant]
     Indication: DEPRESSION
  7. SIMVASTATIN [Concomitant]
     Indication: BLOOD CHOLESTEROL INCREASED
  8. ASPIRIN [Concomitant]
     Indication: CARDIAC DISORDER

REACTIONS (2)
  - PARAESTHESIA [None]
  - FLUSHING [None]
